FAERS Safety Report 8289481-3 (Version None)
Quarter: 2012Q2

REPORT INFORMATION
  Report Type: 
  Country: None (occurrence: None)
  Receive Date: 20120417
  Receipt Date: 20120411
  Transmission Date: 20120825
  Serious: Yes (Death, Life-Threatening, Hospitalization, Other)
  Sender: FDA-Public Use
  Company Number: FR-ASTELLAS-2011EU009616

PATIENT
  Sex: Female
  Weight: 51 kg

DRUGS (6)
  1. MICAFUNGIN INJECTION [Suspect]
     Indication: INFECTIOUS PERITONITIS
  2. CIPROFLOXACIN [Concomitant]
     Indication: INFECTIOUS PERITONITIS
     Dosage: 400 MG, BID
     Route: 042
     Dates: start: 20110904, end: 20110908
  3. IMIPENEM [Concomitant]
     Indication: INFECTIOUS PERITONITIS
     Dosage: 500 MG, QID
     Route: 042
     Dates: start: 20110904, end: 20110925
  4. MICAFUNGIN INJECTION [Suspect]
     Indication: SYSTEMIC CANDIDA
     Dosage: 100 MG, UNKNOWN/D
     Route: 042
     Dates: start: 20110906, end: 20110926
  5. VANCOMYCIN [Concomitant]
     Indication: INFECTIOUS PERITONITIS
     Dosage: 500 MG, UNKNOWN/D
     Route: 042
     Dates: start: 20110904, end: 20110914
  6. LINEZOLID [Concomitant]
     Indication: INFECTIOUS PERITONITIS
     Dosage: 600 MG, BID
     Route: 042
     Dates: start: 20110904, end: 20110925

REACTIONS (6)
  - SEPTIC SHOCK [None]
  - EYE DISORDER [None]
  - DRUG INEFFECTIVE [None]
  - FUNGAL INFECTION [None]
  - DISTURBANCE IN ATTENTION [None]
  - NEUROLOGICAL DECOMPENSATION [None]
